FAERS Safety Report 5542864-4 (Version None)
Quarter: 2007Q4

REPORT INFORMATION
  Report Type: 
  Country: None (occurrence: None)
  Receive Date: 20071123
  Receipt Date: 20070305
  Transmission Date: 20080405
  Serious: Yes (Other)
  Sender: FDA-Public Use
  Company Number: US-JNJFOC-20070301169

PATIENT
  Age: 45 Year
  Sex: Female
  Weight: 48.5349 kg

DRUGS (4)
  1. LEVAQUIN [Suspect]
     Indication: PNEUMONIA
     Dosage: 500 MG, 1 IN 1 DAY, ORAL
     Route: 048
     Dates: start: 20070301, end: 20070301
  2. ADVAIR DISKUS 100/50 [Concomitant]
  3. ASTHMA MEDICATION (ANTI-ASTHMATICS) [Concomitant]
  4. ALBUTEROL [Concomitant]

REACTIONS (1)
  - ANAPHYLACTIC REACTION [None]
